FAERS Safety Report 20914397 (Version 4)
Quarter: 2022Q2

REPORT INFORMATION
  Report Type: Spontaneous
  Country: US (occurrence: US)
  Receive Date: 20220604
  Receipt Date: 20220616
  Transmission Date: 20220720
  Serious: No
  Sender: FDA-Public Use
  Company Number: US-SANOFI-01111372

PATIENT
  Sex: Female

DRUGS (2)
  1. LANTUS SOLOSTAR [Suspect]
     Active Substance: INSULIN GLARGINE
     Dosage: UNK
     Dates: start: 20220429, end: 20220512
  2. LANTUS SOLOSTAR [Suspect]
     Active Substance: INSULIN GLARGINE
     Dosage: UNK
     Dates: start: 20220512

REACTIONS (5)
  - Abdominal distension [Recovering/Resolving]
  - Fatigue [Recovering/Resolving]
  - Asthenia [Recovering/Resolving]
  - Insomnia [Recovering/Resolving]
  - Blood glucose increased [Recovering/Resolving]

NARRATIVE: CASE EVENT DATE: 20220101
